FAERS Safety Report 9857513 (Version 1)
Quarter: 2014Q1

REPORT INFORMATION
  Report Type: Spontaneous
  Country: MX (occurrence: MX)
  Receive Date: 20140131
  Receipt Date: 20140131
  Transmission Date: 20141002
  Serious: Yes (Other)
  Sender: FDA-Public Use
  Company Number: PHHY2014MX010342

PATIENT
  Age: 75 Year
  Sex: Female

DRUGS (11)
  1. EXFORGE [Suspect]
     Indication: HYPERTENSION
     Dosage: 1 TABLET (320/10 MG) DAILY
     Route: 048
     Dates: end: 2013
  2. EXFORGE [Suspect]
     Dosage: 0.5 TABLET (320/10 MG) DAILY
     Route: 048
     Dates: start: 2013
  3. TEMERIT [Concomitant]
     Dosage: 1 (5 MG), DAILY IN THE MORNING
     Dates: start: 2012
  4. ASPIRIN PROTECT [Concomitant]
     Dosage: 1 UKN, DAILY AT NIGHT
     Dates: start: 2006
  5. VYTORIN [Concomitant]
     Indication: BLOOD CHOLESTEROL
     Dosage: 1 UKN, EVERY THIRD DAY
     Dates: start: 201307
  6. ALOPURINOL [Concomitant]
     Indication: BLOOD URIC ACID
     Dosage: 1 UKN, DAILY IN THE MORNING
     Dates: start: 201306
  7. FOLIVITAL [Concomitant]
     Dosage: 1 UKN, DAILY AT NIGHTS
     Dates: start: 201306
  8. MULTAMIN//VITAMINS NOS [Concomitant]
     Indication: VITAMIN SUPPLEMENTATION
     Dosage: 1 UKN, DAILY
     Dates: start: 201306
  9. TRAYENTA [Concomitant]
     Dosage: 1 UKN, DAILY IN THE MORNING
     Dates: start: 201306
  10. PRANDIN//REPAGLINIDE [Concomitant]
     Dosage: 1 UKN, BID (AT BREAKFAST AND LUNCH)
     Dates: start: 201305
  11. INSULIN [Concomitant]
     Dosage: 42 IU, DAILY AT NIGHTS
     Dates: start: 201312

REACTIONS (5)
  - Hypoglycaemia [Recovered/Resolved]
  - Chondropathy [Recovered/Resolved]
  - Renal impairment [Not Recovered/Not Resolved]
  - Feeling abnormal [Recovered/Resolved]
  - Wrong technique in drug usage process [Not Recovered/Not Resolved]
